FAERS Safety Report 9050655 (Version 5)
Quarter: 2013Q3

REPORT INFORMATION
  Report Type: Spontaneous
  Country: US (occurrence: US)
  Receive Date: 20130205
  Receipt Date: 20130826
  Transmission Date: 20140515
  Serious: Yes (Hospitalization, Other)
  Sender: FDA-Public Use
  Company Number: US-009507513-1302USA001570

PATIENT
  Sex: Female
  Weight: 82.54 kg

DRUGS (3)
  1. FOSAMAX [Suspect]
     Indication: OSTEOPOROSIS
     Dosage: 70 MG, UNK
     Route: 048
     Dates: start: 1999, end: 2001
  2. FOSAMAX [Suspect]
     Dosage: 10 MG, QD
     Route: 048
     Dates: start: 1999, end: 2001
  3. LEVOTHYROXINE SODIUM [Concomitant]
     Indication: HYPOTHYROIDISM
     Dosage: UNK
     Dates: start: 1988

REACTIONS (22)
  - Femur fracture [Unknown]
  - Cholecystectomy [Unknown]
  - Intramedullary rod insertion [Unknown]
  - Hysterectomy [Unknown]
  - Knee arthroplasty [Unknown]
  - Fall [Unknown]
  - Impaired healing [Unknown]
  - Tonsillectomy [Unknown]
  - Dental prosthesis user [Unknown]
  - Tooth extraction [Unknown]
  - Adenoidectomy [Unknown]
  - Vitamin D deficiency [Unknown]
  - Exostosis [Unknown]
  - Foot fracture [Unknown]
  - Tendon sheath incision [Unknown]
  - Arthritis [Unknown]
  - Osteoarthritis [Unknown]
  - Orthostatic hypotension [Unknown]
  - Urinary tract infection [Unknown]
  - Nephrolithiasis [Unknown]
  - Arthralgia [Not Recovered/Not Resolved]
  - Gastrooesophageal reflux disease [Unknown]
